FAERS Safety Report 4379588-5 (Version None)
Quarter: 2004Q2

REPORT INFORMATION
  Report Type: 
  Country: None (occurrence: None)
  Receive Date: 20040427
  Receipt Date: 20040212
  Transmission Date: 20050107
  Serious: Yes (Other)
  Sender: FDA-Public Use
  Company Number: 358851

PATIENT
  Sex: Female

DRUGS (3)
  1. VALCYTE [Suspect]
     Indication: LUNG TRANSPLANT
     Dosage: ORAL
     Route: 048
  2. VALCYTE [Suspect]
     Indication: ORGAN TRANSPLANT
     Dosage: ORAL
     Route: 048
  3. VALCYTE [Suspect]
     Indication: RENAL TRANSPLANT
     Dosage: ORAL
     Route: 048

REACTIONS (2)
  - DECREASED APPETITE [None]
  - NAUSEA [None]
